FAERS Safety Report 5135863-8 (Version None)
Quarter: 2006Q4

REPORT INFORMATION
  Report Type: 
  Country: None (occurrence: None)
  Receive Date: 20061026
  Receipt Date: 20061016
  Transmission Date: 20070319
  Serious: Yes (Other)
  Sender: FDA-Public Use
  Company Number: NO-ABBOTT-06P-122-0347527-00

PATIENT
  Age: 55 Year
  Sex: Female

DRUGS (2)
  1. ERYTHROMYCIN BASE [Suspect]
     Indication: DRUG USE FOR UNKNOWN INDICATION
  2. DESLORATADINE [Suspect]
     Indication: DRUG USE FOR UNKNOWN INDICATION

REACTIONS (2)
  - CHOLESTASIS [None]
  - HEPATIC ENZYME INCREASED [None]
